FAERS Safety Report 14674960 (Version 2)
Quarter: 2018Q1

REPORT INFORMATION
  Report Type: Spontaneous
  Country: GB (occurrence: GB)
  Receive Date: 20180323
  Receipt Date: 20180329
  Transmission Date: 20180509
  Serious: Yes (Death, Hospitalization)
  Sender: FDA-Public Use
  Company Number: GB-ASTRAZENECA-2018SE35201

PATIENT
  Age: 41 Year
  Sex: Male

DRUGS (13)
  1. LORAZEPAM. [Concomitant]
     Active Substance: LORAZEPAM
     Indication: AGITATION
     Dosage: INTERMITTENT
  2. CO-BENELDOPA [Concomitant]
     Active Substance: BENSERAZIDE HYDROCHLORIDE\LEVODOPA
     Indication: PARKINSON^S DISEASE
     Dosage: 6 X 25MG/100MG / 1 DAY(S)
     Route: 048
  3. DOCUSATE SODIUM. [Concomitant]
     Active Substance: DOCUSATE SODIUM
     Indication: PRODUCT USED FOR UNKNOWN INDICATION
     Route: 048
  4. TEMAZEPAM. [Concomitant]
     Active Substance: TEMAZEPAM
     Indication: PRODUCT USED FOR UNKNOWN INDICATION
     Route: 048
  5. PROPRANOLOL [Concomitant]
     Active Substance: PROPRANOLOL HYDROCHLORIDE
     Indication: PRODUCT USED FOR UNKNOWN INDICATION
     Route: 048
  6. QUETIAPINE. [Suspect]
     Active Substance: QUETIAPINE
     Indication: PSYCHOTIC DISORDER
     Dosage: 400MG, DAILY
     Route: 048
  7. APOMORPHINE [Suspect]
     Active Substance: APOMORPHINE
     Indication: PARKINSON^S DISEASE
     Dosage: 30MG/3ML, REDUCED TO 4-5 X 4MG/ 1 DAY(S)
     Route: 058
  8. CO-BENELDOPA [Concomitant]
     Active Substance: BENSERAZIDE HYDROCHLORIDE\LEVODOPA
     Indication: PARKINSON^S DISEASE
     Dosage: 6 X 12.5MG/50MG / 1 DAY(S)
     Route: 048
  9. SENNA [Concomitant]
     Active Substance: SENNA LEAF\SENNOSIDES\SENNOSIDES A AND B
     Indication: PRODUCT USED FOR UNKNOWN INDICATION
     Route: 048
  10. APOMORPHINE [Suspect]
     Active Substance: APOMORPHINE
     Indication: PARKINSON^S DISEASE
     Dosage: 30MG/3ML, 10-12 X 4MG / 1 DAY(S)
     Route: 058
  11. LACTULOSE. [Concomitant]
     Active Substance: LACTULOSE
     Indication: PRODUCT USED FOR UNKNOWN INDICATION
     Route: 048
  12. LANSOPRAZOLE. [Concomitant]
     Active Substance: LANSOPRAZOLE
     Indication: PRODUCT USED FOR UNKNOWN INDICATION
     Route: 048
  13. ROTIGOTINE [Concomitant]
     Active Substance: ROTIGOTINE
     Indication: PARKINSON^S DISEASE

REACTIONS (8)
  - Lower respiratory tract infection [Fatal]
  - Neuroleptic malignant syndrome [Fatal]
  - Drug abuse [Fatal]
  - Contraindication to medical treatment [Fatal]
  - Drug interaction [Fatal]
  - Drug dependence [Fatal]
  - Acute kidney injury [Fatal]
  - Sexually inappropriate behaviour [Fatal]

NARRATIVE: CASE EVENT DATE: 20170818
